FAERS Safety Report 7462428-5 (Version None)
Quarter: 2011Q2

REPORT INFORMATION
  Report Type: 
  Country: None (occurrence: None)
  Receive Date: 20110506
  Receipt Date: 20110425
  Transmission Date: 20111010
  Serious: Yes (Hospitalization)
  Sender: FDA-Public Use
  Company Number: IN-BRISTOL-MYERS SQUIBB COMPANY-15698434

PATIENT
  Age: 42 Year
  Sex: Male

DRUGS (11)
  1. ASPIRIN [Interacting]
     Indication: DEEP VEIN THROMBOSIS
     Dosage: RECEIVING FROM 8 MONTHS.
  2. CITALOPRAM HYDROBROMIDE [Interacting]
     Indication: SCHIZOPHRENIA
  3. ATORVASTATIN [Interacting]
     Indication: DYSLIPIDAEMIA
  4. FENOFIBRATE [Interacting]
     Indication: DYSLIPIDAEMIA
  5. WARFARIN SODIUM [Suspect]
     Indication: DEEP VEIN THROMBOSIS
     Dosage: RECEIVING FROM 8 MONTHS.
  6. DICLOFENAC SODIUM [Interacting]
     Indication: PAIN IN EXTREMITY
  7. CITALOPRAM HYDROBROMIDE [Interacting]
     Indication: DEPRESSION
  8. QUETIAPINE [Interacting]
     Indication: DEPRESSION
  9. PROPRANOLOL HYDROCHLORIDE [Interacting]
     Indication: DEPRESSION
  10. QUETIAPINE [Interacting]
     Indication: SCHIZOPHRENIA
  11. PROPRANOLOL HYDROCHLORIDE [Interacting]
     Indication: SCHIZOPHRENIA

REACTIONS (5)
  - SPINAL EPIDURAL HAEMORRHAGE [None]
  - ECCHYMOSIS [None]
  - DRUG INTERACTION [None]
  - MELAENA [None]
  - HYPOVOLAEMIC SHOCK [None]
